FAERS Safety Report 17944494 (Version 1)
Quarter: 2020Q2

REPORT INFORMATION
  Report Type: Spontaneous
  Country: BR (occurrence: BR)
  Receive Date: 20200625
  Receipt Date: 20200625
  Transmission Date: 20200714
  Serious: Yes (Hospitalization, Other)
  Sender: FDA-Public Use
  Company Number: BR-ASTRAZENECA-2020SE79075

PATIENT
  Age: 613 Month
  Sex: Female

DRUGS (1)
  1. SYMBICORT [Suspect]
     Active Substance: BUDESONIDE\FORMOTEROL FUMARATE DIHYDRATE
     Indication: ASTHMA
     Dosage: 160/4.5 MCG 2 JETS DAILY
     Route: 055
     Dates: start: 201911

REACTIONS (5)
  - Device related infection [Recovered/Resolved]
  - Breast mass [Unknown]
  - Intentional product misuse [Not Recovered/Not Resolved]
  - Sepsis [Recovered/Resolved]
  - Dyspnoea [Unknown]

NARRATIVE: CASE EVENT DATE: 201912
